FAERS Safety Report 6972474-3 (Version None)
Quarter: 2010Q3

REPORT INFORMATION
  Report Type: 
  Country: None (occurrence: None)
  Receive Date: 20100909
  Receipt Date: 20100902
  Transmission Date: 20110219
  Serious: Yes (Life-Threatening, Hospitalization)
  Sender: FDA-Public Use
  Company Number: DE-TEVA-183713ISR

PATIENT
  Age: 80 Year
  Sex: Female
  Weight: 91 kg

DRUGS (13)
  1. CARVEDILOL [Interacting]
     Indication: HYPERTENSION
     Route: 048
  2. ENALAPRIL MALEATE [Interacting]
     Indication: HYPERTENSION
     Route: 048
  3. INSULIN HUMAN [Suspect]
     Indication: TYPE 2 DIABETES MELLITUS
     Dosage: 30-18-16
     Route: 058
     Dates: start: 20080219
  4. INSULIN GLARGINE [Interacting]
     Indication: TYPE 2 DIABETES MELLITUS
     Route: 058
     Dates: start: 20080211
  5. ACETYLSALICYLIC ACID [Concomitant]
     Indication: HEART VALVE INCOMPETENCE
     Route: 048
  6. CALCIUM CARBONATE [Concomitant]
     Indication: OSTEOPOROSIS PROPHYLAXIS
     Dosage: 60MG CALCIUM + 10 MICROGRAM COLECALCIFEROL
     Route: 048
     Dates: start: 20080201
  7. LEVOTHYROXINE SODIUM [Concomitant]
     Indication: HYPOTHYROIDISM
     Route: 048
  8. OMEPRAZOLE [Concomitant]
     Indication: PROPHYLAXIS AGAINST GASTROINTESTINAL ULCER
     Route: 048
  9. DIHYDROCODEINE BITARTRATE INJ [Concomitant]
     Indication: CHRONIC OBSTRUCTIVE PULMONARY DISEASE
     Route: 048
     Dates: start: 20070111
  10. PREDNISOLONE [Concomitant]
     Indication: CHRONIC OBSTRUCTIVE PULMONARY DISEASE
     Route: 048
     Dates: start: 20080101
  11. RISPERIDONE [Concomitant]
     Indication: DEMENTIA
     Route: 048
  12. ALBUTEROL SULFATE AUTOHALER [Concomitant]
     Indication: CHRONIC OBSTRUCTIVE PULMONARY DISEASE
     Dates: start: 20080101
  13. TORASEMIDE [Concomitant]
     Indication: HYPERTENSION
     Route: 048

REACTIONS (2)
  - DRUG INTERACTION [None]
  - HYPOGLYCAEMIA [None]
